FAERS Safety Report 25952806 (Version 1)
Quarter: 2025Q4

REPORT INFORMATION
  Report Type: Spontaneous
  Country: JP (occurrence: JP)
  Receive Date: 20251023
  Receipt Date: 20251023
  Transmission Date: 20260117
  Serious: Yes (Hospitalization, Other)
  Sender: BRISTOL-MYERS SQUIBB COMPANY
  Company Number: JP-ONO-2025JP018604

PATIENT
  Age: 81 Year
  Sex: Male
  Weight: 54.8 kg

DRUGS (5)
  1. OPDIVO [Suspect]
     Active Substance: NIVOLUMAB
     Indication: Oesophageal carcinoma
     Dosage: 240 MG
     Dates: start: 20250508, end: 20250731
  2. ZINC ACETATE HYDRATE [Concomitant]
     Indication: Product used for unknown indication
     Dosage: UNK
  3. MIYA-BM [Concomitant]
     Active Substance: CLOSTRIDIUM BUTYRICUM SPORES STRAIN M-55
     Indication: Product used for unknown indication
     Dosage: UNK
  4. CARBOHYDRATES\FATTY ACIDS\MINERALS\PROTEIN\VITAMINS [Concomitant]
     Active Substance: CARBOHYDRATES\FATTY ACIDS\MINERALS\PROTEIN\VITAMINS
     Indication: Product used for unknown indication
     Dosage: UNK
  5. RACOL-NF [Concomitant]
     Indication: Product used for unknown indication
     Dosage: UNK

REACTIONS (6)
  - Hyperglycaemia [Unknown]
  - Glucose urine present [Unknown]
  - Insulin C-peptide decreased [Unknown]
  - Weight decreased [Unknown]
  - Fulminant type 1 diabetes mellitus [Recovering/Resolving]
  - Impaired insulin secretion [Unknown]

NARRATIVE: CASE EVENT DATE: 20250814
